FAERS Safety Report 15832191 (Version 1)
Quarter: 2019Q1

REPORT INFORMATION
  Report Type: Spontaneous
  Country: US (occurrence: US)
  Receive Date: 20190116
  Receipt Date: 20190116
  Transmission Date: 20190417
  Serious: No
  Sender: FDA-Public Use
  Company Number: US-TEVA-2019-US-997302

PATIENT
  Sex: Female

DRUGS (1)
  1. AJOVY [Suspect]
     Active Substance: FREMANEZUMAB-VFRM
     Indication: MIGRAINE
     Dosage: 1 INJECTION OF 225MG/1.5
     Route: 065
     Dates: start: 20181203

REACTIONS (4)
  - Neuralgia [Unknown]
  - Migraine [Unknown]
  - Fatigue [Unknown]
  - Ear discomfort [Unknown]

NARRATIVE: CASE EVENT DATE: 201812
